FAERS Safety Report 16759005 (Version 2)
Quarter: 2019Q3

REPORT INFORMATION
  Report Type: Spontaneous
  Country: CA (occurrence: CA)
  Receive Date: 20190830
  Receipt Date: 20190830
  Transmission Date: 20191005
  Serious: Yes (Life-Threatening, Other)
  Sender: FDA-Public Use
  Company Number: PHHY2019CA201265

PATIENT
  Age: 45 Year
  Sex: Female

DRUGS (32)
  1. TACROLIMUS. [Suspect]
     Active Substance: TACROLIMUS
     Dosage: 6.0 MG, QD (1 DAY)
     Route: 048
  2. ANTITHYMOCYTE IMMUNOGLOBULIN [Suspect]
     Active Substance: THYMOCYTE IMMUNE GLOBULIN NOS
     Indication: TRANSPLANT
     Dosage: 50 MG, UNK
     Route: 065
  3. ANTITHYMOCYTE IMMUNOGLOBULIN [Suspect]
     Active Substance: THYMOCYTE IMMUNE GLOBULIN NOS
     Dosage: 60 MG, UNK
     Route: 065
  4. CELLCEPT [Suspect]
     Active Substance: MYCOPHENOLATE MOFETIL\MYCOPHENOLATE MOFETIL HYDROCHLORIDE
     Indication: TRANSPLANT
     Dosage: 1000.0 MG, Q12H
     Route: 048
  5. DACLIZUMAB [Suspect]
     Active Substance: DACLIZUMAB
     Indication: TRANSPLANT
     Dosage: UNK
     Route: 042
  6. ENBREL [Suspect]
     Active Substance: ETANERCEPT
     Dosage: 25.0 MG, QD
     Route: 058
  7. ENBREL [Suspect]
     Active Substance: ETANERCEPT
     Dosage: 25.0 MG, UNK
     Route: 058
  8. RAPAMUNE [Suspect]
     Active Substance: SIROLIMUS
     Indication: TRANSPLANT
     Dosage: UNK
     Route: 065
  9. DACLIZUMAB [Suspect]
     Active Substance: DACLIZUMAB
     Dosage: 5.0 MG, UNK
     Route: 042
  10. ENBREL [Suspect]
     Active Substance: ETANERCEPT
     Dosage: 50.0 MG, UNK
     Route: 058
  11. ENBREL [Suspect]
     Active Substance: ETANERCEPT
     Dosage: 25.0 MG, QD
     Route: 058
  12. TACROLIMUS. [Suspect]
     Active Substance: TACROLIMUS
     Dosage: 5.0 MG, QD (1 DAY)
     Route: 048
  13. TACROLIMUS. [Suspect]
     Active Substance: TACROLIMUS
     Dosage: 2.0 MG, BID (1 DAY)
     Route: 048
  14. ENBREL [Suspect]
     Active Substance: ETANERCEPT
     Dosage: 50.0 MG, QD (1WEEK)
     Route: 058
  15. SULFASALAZINE. [Suspect]
     Active Substance: SULFASALAZINE
     Indication: RHEUMATOID ARTHRITIS
     Dosage: 1.0 G, UNK
     Route: 065
  16. ANTITHYMOCYTE IMMUNOGLOBULIN (RABBIT) [Suspect]
     Active Substance: LAPINE T-LYMPHOCYTE IMMUNE GLOBULIN
     Indication: TRANSPLANT
     Dosage: 60 MG, UNK
     Route: 065
  17. CELLCEPT [Suspect]
     Active Substance: MYCOPHENOLATE MOFETIL\MYCOPHENOLATE MOFETIL HYDROCHLORIDE
     Dosage: 1000.0 MG, QID
     Route: 048
  18. REMICADE [Suspect]
     Active Substance: INFLIXIMAB
     Indication: PRODUCT USED FOR UNKNOWN INDICATION
     Dosage: UNK
     Route: 042
  19. TACROLIMUS. [Suspect]
     Active Substance: TACROLIMUS
     Dosage: 2.5 MG, BID (1 DAY)
     Route: 048
  20. ENBREL [Suspect]
     Active Substance: ETANERCEPT
     Indication: PRODUCT USED FOR UNKNOWN INDICATION
     Dosage: 50.0 MG, UNK
     Route: 058
  21. ENBREL [Suspect]
     Active Substance: ETANERCEPT
     Dosage: 25.0 MG, QD
     Route: 048
  22. TACROLIMUS. [Suspect]
     Active Substance: TACROLIMUS
     Indication: TRANSPLANT
     Dosage: 3.0 MG, BID (1 DAY)
     Route: 048
  23. CELLCEPT [Suspect]
     Active Substance: MYCOPHENOLATE MOFETIL\MYCOPHENOLATE MOFETIL HYDROCHLORIDE
     Dosage: 2000.0 NG, QD
     Route: 048
  24. DACLIZUMAB [Suspect]
     Active Substance: DACLIZUMAB
     Dosage: 5.0 MG, UNK
     Route: 042
  25. ENBREL [Suspect]
     Active Substance: ETANERCEPT
     Dosage: 25 MG, UNK
     Route: 065
  26. ANTITHYMOCYTE IMMUNOGLOBULIN [Suspect]
     Active Substance: THYMOCYTE IMMUNE GLOBULIN NOS
     Dosage: 6.0 MG/KG, UNK
     Route: 065
  27. ANTITHYMOCYTE IMMUNOGLOBULIN [Suspect]
     Active Substance: THYMOCYTE IMMUNE GLOBULIN NOS
     Dosage: 6.0 MG/KG, UNK
     Route: 065
  28. ENBREL [Suspect]
     Active Substance: ETANERCEPT
     Dosage: 250.0 MG, QD
     Route: 058
  29. NEORAL [Suspect]
     Active Substance: CYCLOSPORINE
     Indication: TRANSPLANT
     Dosage: UNK
     Route: 065
  30. ANTITHYMOCYTE IMMUNOGLOBULIN [Suspect]
     Active Substance: THYMOCYTE IMMUNE GLOBULIN NOS
     Dosage: 6.0 MG, UNK
     Route: 065
  31. ENBREL [Suspect]
     Active Substance: ETANERCEPT
     Dosage: 20.0 MG, QD
     Route: 058
  32. ENBREL [Suspect]
     Active Substance: ETANERCEPT
     Dosage: 25.0 MG, QD
     Route: 048

REACTIONS (16)
  - Pneumonia [Not Recovered/Not Resolved]
  - Transplant rejection [Not Recovered/Not Resolved]
  - Incorrect route of product administration [Not Recovered/Not Resolved]
  - Product use issue [Not Recovered/Not Resolved]
  - Liver function test abnormal [Not Recovered/Not Resolved]
  - Rheumatoid arthritis [Not Recovered/Not Resolved]
  - Pain [Not Recovered/Not Resolved]
  - Overdose [Not Recovered/Not Resolved]
  - Acne [Not Recovered/Not Resolved]
  - Ovarian cyst [Not Recovered/Not Resolved]
  - Condition aggravated [Not Recovered/Not Resolved]
  - Alopecia [Not Recovered/Not Resolved]
  - Loss of personal independence in daily activities [Not Recovered/Not Resolved]
  - Transplant dysfunction [Not Recovered/Not Resolved]
  - Sleep disorder due to general medical condition, insomnia type [Not Recovered/Not Resolved]
  - Drug ineffective [Not Recovered/Not Resolved]
